FAERS Safety Report 9010482 (Version 1)
Quarter: 2013Q1

REPORT INFORMATION
  Report Type: Spontaneous
  Country: GB (occurrence: GB)
  Receive Date: 20130109
  Receipt Date: 20130109
  Transmission Date: 20140127
  Serious: Yes (Hospitalization, Disabling)
  Sender: FDA-Public Use
  Company Number: GB-TEVA-378861ISR

PATIENT
  Age: 91 Year
  Sex: Female
  Weight: 53 kg

DRUGS (12)
  1. FUROSEMIDE [Suspect]
     Indication: CARDIAC FAILURE
     Route: 048
  2. FUROSEMIDE [Suspect]
     Dosage: 80 MILLIGRAM DAILY;
     Route: 048
  3. TRIMETHOPRIM [Suspect]
     Indication: URINARY TRACT INFECTION
     Dosage: 400 MILLIGRAM DAILY; 200MG TWICE A DAY FOR 5 DAYS HOWEVER 6 DAYS WERE GIVEN
  4. BISOPROLOL [Concomitant]
     Dosage: 5 MILLIGRAM DAILY;
  5. ASPIRIN [Concomitant]
     Dosage: 75 MILLIGRAM DAILY; MORNING
  6. ENOXAPARIN SODIUM [Concomitant]
     Dosage: 40 MILLIGRAM DAILY; ONLY WHILST IN HOSPITAL
  7. NICORANDIL [Concomitant]
     Dosage: 20 MILLIGRAM DAILY;
  8. ALENDRONATE [Concomitant]
     Dosage: 10 MILLIGRAM DAILY;
  9. FERROUS FUMARATE [Concomitant]
     Dosage: 140 MILLIGRAM DAILY;
  10. RANITIDINE [Concomitant]
     Dosage: 300 MILLIGRAM DAILY;
  11. PREDNISOLONE [Concomitant]
     Dosage: 20 MILLIGRAM DAILY; EACH MORNING
  12. OMEPRAZOLE [Concomitant]
     Dosage: 20 MILLIGRAM DAILY; EACH MORNING

REACTIONS (4)
  - Haematoma [Recovering/Resolving]
  - Contusion [Unknown]
  - Laceration [Unknown]
  - Medication error [Unknown]
